FAERS Safety Report 12806363 (Version 1)
Quarter: 2016Q4

REPORT INFORMATION
  Report Type: Spontaneous
  Country: US (occurrence: US)
  Receive Date: 20161004
  Receipt Date: 20161004
  Transmission Date: 20170207
  Serious: Yes (Hospitalization, Other)
  Sender: FDA-Public Use
  Company Number: None

PATIENT
  Age: 17 Year
  Sex: Female
  Weight: 56 kg

DRUGS (3)
  1. GAMUNEX [Suspect]
     Active Substance: HUMAN IMMUNOGLOBULIN G
     Indication: CHOREA
     Dates: start: 20160805
  2. APAP [Concomitant]
     Active Substance: ACETAMINOPHEN
  3. METHYLPREDNISOLONE. [Concomitant]
     Active Substance: METHYLPREDNISOLONE

REACTIONS (7)
  - Heart rate increased [None]
  - Throat tightness [None]
  - Cardio-respiratory arrest [None]
  - Dyspnoea [None]
  - Abdominal pain [None]
  - Discomfort [None]
  - Flushing [None]

NARRATIVE: CASE EVENT DATE: 20160805
